FAERS Safety Report 16359568 (Version 1)
Quarter: 2019Q2

REPORT INFORMATION
  Report Type: Spontaneous
  Country: DE (occurrence: DE)
  Receive Date: 20190528
  Receipt Date: 20190528
  Transmission Date: 20190711
  Serious: Yes (Other)
  Sender: FDA-Public Use
  Company Number: DE-ROCHE-2326916

PATIENT
  Age: 55 Year
  Sex: Male

DRUGS (6)
  1. RITUXIMAB. [Suspect]
     Active Substance: RITUXIMAB
     Dosage: 3RD COURSE
     Route: 065
     Dates: start: 201609
  2. RITUXIMAB. [Suspect]
     Active Substance: RITUXIMAB
     Indication: ANTI-NEUTROPHIL CYTOPLASMIC ANTIBODY POSITIVE VASCULITIS
     Route: 065
     Dates: start: 201507
  3. ALL OTHER THERAPEUTIC PRODUCTS [Concomitant]
     Active Substance: UNSPECIFIED INGREDIENT
  4. RITUXIMAB. [Suspect]
     Active Substance: RITUXIMAB
     Dosage: 2ND COURSE
     Route: 065
     Dates: start: 201601
  5. PREDNISOLONE. [Concomitant]
     Active Substance: PREDNISOLONE
  6. CYCLOPHOSPHAMIDE. [Concomitant]
     Active Substance: CYCLOPHOSPHAMIDE
     Route: 048

REACTIONS (4)
  - Immunoglobulins decreased [Unknown]
  - Pneumonia [Unknown]
  - Tooth infection [Unknown]
  - Anti-neutrophil cytoplasmic antibody positive vasculitis [Unknown]
